FAERS Safety Report 19419301 (Version 1)
Quarter: 2021Q2

REPORT INFORMATION
  Report Type: Spontaneous
  Country: FR (occurrence: FR)
  Receive Date: 20210615
  Receipt Date: 20210615
  Transmission Date: 20210717
  Serious: Yes (Other)
  Sender: FDA-Public Use
  Company Number: FR-PFIZER INC-2021653492

PATIENT
  Age: 22 Year
  Sex: Male

DRUGS (2)
  1. ALPRAZOLAM. [Suspect]
     Active Substance: ALPRAZOLAM
     Dosage: UP TO 5 TABLETS PER DAY FOR A FEW WEEKS
     Route: 048
  2. ALCOOL [Suspect]
     Active Substance: ALCOHOL
     Dosage: 1 BOTTLE OF RUM EVERY 2 DAYS AND 3 TO 4 BEERS OF 50 CC AT 7 ? FOR SEVERAL YEARS
     Route: 048

REACTIONS (1)
  - Drug use disorder [Not Recovered/Not Resolved]
